FAERS Safety Report 12963300 (Version 1)
Quarter: 2016Q4

REPORT INFORMATION
  Report Type: Spontaneous
  Country: GR (occurrence: GR)
  Receive Date: 20161122
  Receipt Date: 20161122
  Transmission Date: 20170207
  Serious: Yes (Other)
  Sender: FDA-Public Use
  Company Number: GR-ROCHE-1856334

PATIENT
  Age: 78 Year
  Sex: Female

DRUGS (1)
  1. ERIVEDGE [Suspect]
     Active Substance: VISMODEGIB
     Indication: BASAL CELL CARCINOMA
     Route: 065
     Dates: start: 201510

REACTIONS (4)
  - Ageusia [Unknown]
  - Alopecia [Unknown]
  - Transaminases increased [Unknown]
  - Amylase decreased [Unknown]
